FAERS Safety Report 10425192 (Version 2)
Quarter: 2014Q3

REPORT INFORMATION
  Report Type: Report from Study
  Country: JP (occurrence: JP)
  Receive Date: 20140902
  Receipt Date: 20140930
  Transmission Date: 20150326
  Serious: Yes (Other)
  Sender: FDA-Public Use
  Company Number: PHHY2009JP072489

PATIENT
  Age: 72 Year
  Sex: Female

DRUGS (3)
  1. AMN107 [Suspect]
     Active Substance: NILOTINIB
     Indication: CHRONIC MYELOID LEUKAEMIA
     Dosage: 800 MG, DAILY
     Dates: start: 20090609
  2. AMN107 [Suspect]
     Active Substance: NILOTINIB
     Dosage: 200 MG, UNK
  3. SPRYCEL [Suspect]
     Active Substance: DASATINIB

REACTIONS (2)
  - Angina pectoris [Recovered/Resolved]
  - Blood cholesterol increased [Unknown]

NARRATIVE: CASE EVENT DATE: 20090707
